FAERS Safety Report 4382742-X (Version None)
Quarter: 2004Q2

REPORT INFORMATION
  Report Type: 
  Country: None (occurrence: None)
  Receive Date: 20040603
  Receipt Date: 20040210
  Transmission Date: 20050107
  Serious: Yes (Other)
  Sender: FDA-Public Use
  Company Number: 200410984US

PATIENT
  Sex: Male

DRUGS (2)
  1. ENOXAPARIN SODIUM [Suspect]
     Indication: KNEE ARTHROPLASTY
     Dosage: 40 MG QD SC
     Route: 058
  2. ENOXAPARIN SODIUM [Suspect]
     Indication: PROPHYLAXIS
     Dosage: 40 MG QD SC
     Route: 058

REACTIONS (4)
  - DERMATITIS EXFOLIATIVE [None]
  - INJECTION SITE HAEMORRHAGE [None]
  - PAIN [None]
  - SKIN NECROSIS [None]
